FAERS Safety Report 8350113-7 (Version None)
Quarter: 2012Q2

REPORT INFORMATION
  Report Type: 
  Country: None (occurrence: None)
  Receive Date: 20120510
  Receipt Date: 20120502
  Transmission Date: 20120825
  Serious: Yes (Hospitalization)
  Sender: FDA-Public Use
  Company Number: IT-ROCHE-1046093

PATIENT
  Sex: Female

DRUGS (10)
  1. TORECAN [Concomitant]
     Dates: start: 20120123, end: 20120206
  2. DELORAZEPAM [Concomitant]
     Dates: start: 20111001, end: 20120206
  3. TIZANIDINE HCL [Concomitant]
     Dates: start: 20120205, end: 20120206
  4. NITROGLYCERIN [Concomitant]
     Dates: start: 20020201, end: 20120206
  5. TORADOL [Suspect]
     Indication: MUSCLE CONTRACTURE
     Route: 048
     Dates: start: 20120205, end: 20120206
  6. ATORVASTATIN CALCIUM [Concomitant]
     Dates: start: 20020201, end: 20120206
  7. IRBESARTAN AND HYDROCHLOROTHIAZIDE [Concomitant]
     Dates: start: 20040201, end: 20120206
  8. NEBIVOLOL HCL [Concomitant]
     Dates: start: 20000201, end: 20120206
  9. MUCOSOLVAN [Concomitant]
     Dates: start: 20120201, end: 20120206
  10. ASPIRIN [Suspect]
     Indication: PLATELET AGGREGATION INHIBITION
     Route: 048
     Dates: start: 19960201, end: 20120207

REACTIONS (2)
  - EROSIVE DUODENITIS [None]
  - GASTRIC ULCER [None]
